FAERS Safety Report 10958546 (Version 1)
Quarter: 2015Q1

REPORT INFORMATION
  Report Type: Spontaneous
  Country: US (occurrence: US)
  Receive Date: 20150326
  Receipt Date: 20150326
  Transmission Date: 20150721
  Serious: No
  Sender: FDA-Public Use
  Company Number: US-GLAXOSMITHKLINE-US2014GSK053812

PATIENT
  Sex: Female

DRUGS (2)
  1. VOTRIENT [Suspect]
     Active Substance: PAZOPANIB HYDROCHLORIDE
     Indication: PRODUCT USED FOR UNKNOWN INDICATION
     Dosage: 800 MG, QD
     Route: 048
  2. VOTRIENT [Suspect]
     Active Substance: PAZOPANIB HYDROCHLORIDE
     Dosage: 600 MG, QD
     Route: 048

REACTIONS (11)
  - Injection site swelling [Unknown]
  - Surgery [Unknown]
  - Nausea [Unknown]
  - Pain [Unknown]
  - Blood pressure increased [Unknown]
  - Injection site pain [Unknown]
  - Heart rate decreased [Unknown]
  - Epidural injection [Unknown]
  - Headache [Unknown]
  - Heart rate increased [Unknown]
  - Labile blood pressure [Unknown]
